FAERS Safety Report 6010220-0 (Version None)
Quarter: 2008Q4

REPORT INFORMATION
  Report Type: 
  Country: None (occurrence: None)
  Receive Date: 20081218
  Receipt Date: 20071212
  Transmission Date: 20090506
  Serious: No
  Sender: FDA-Public Use
  Company Number: A0698613A

PATIENT
  Age: 39 Year
  Sex: Female

DRUGS (2)
  1. FLONASE [Suspect]
     Dosage: 2SPR PER DAY
     Route: 045
     Dates: start: 20071127
  2. ORTHO EVRA [Concomitant]

REACTIONS (1)
  - FAECES DISCOLOURED [None]
